FAERS Safety Report 12715805 (Version 1)
Quarter: 2016Q3

REPORT INFORMATION
  Report Type: Spontaneous
  Country: US (occurrence: US)
  Receive Date: 20160906
  Receipt Date: 20160906
  Transmission Date: 20161109
  Serious: No
  Sender: FDA-Public Use
  Company Number: US-PFIZER INC-2016416612

PATIENT
  Age: 42 Year
  Sex: Male
  Weight: 55 kg

DRUGS (12)
  1. CETUXIMAB [Concomitant]
     Active Substance: CETUXIMAB
     Indication: COLON CANCER
     Dosage: 835 MG, UNK
  2. IRINOTECAN HCL [Suspect]
     Active Substance: IRINOTECAN HYDROCHLORIDE
     Indication: COLON CANCER
     Dosage: 202 MG, ONCE EVERY 2 WEEKS
     Route: 042
     Dates: start: 20160831
  3. HYDROMORPHONE [Concomitant]
     Active Substance: HYDROMORPHONE
     Indication: PAIN
  4. DEXAMETHASONE. [Concomitant]
     Active Substance: DEXAMETHASONE
     Indication: VOMITING
  5. MAGNESIUM [Concomitant]
     Active Substance: MAGNESIUM
     Dosage: 400 MG, 2X/DAY
  6. DEXAMETHASONE. [Concomitant]
     Active Substance: DEXAMETHASONE
     Indication: NAUSEA
     Dosage: 10 MG, UNK
     Route: 042
  7. MAGNESIUM SULFATE. [Concomitant]
     Active Substance: MAGNESIUM SULFATE
     Indication: HYPOMAGNESAEMIA
     Dosage: UNK
     Route: 042
  8. BENADRYL [Concomitant]
     Active Substance: DIPHENHYDRAMINE HYDROCHLORIDE
     Dosage: 50 MG, UNK
  9. TYLENOL [Concomitant]
     Active Substance: ACETAMINOPHEN
     Indication: PREMEDICATION
     Dosage: 650 MG, UNK
  10. PALONOSETRON [Concomitant]
     Active Substance: PALONOSETRON
     Indication: NAUSEA
     Dosage: 0.25 MG, UNK
     Route: 042
  11. PALONOSETRON [Concomitant]
     Active Substance: PALONOSETRON
     Indication: VOMITING
  12. DOCUSATE [Concomitant]
     Active Substance: DOCUSATE
     Indication: CONSTIPATION

REACTIONS (4)
  - Oesophageal spasm [Recovered/Resolved]
  - Diarrhoea [Unknown]
  - Vestibular disorder [Recovered/Resolved]
  - Speech disorder [Recovered/Resolved]

NARRATIVE: CASE EVENT DATE: 20160831
